FAERS Safety Report 25833630 (Version 1)
Quarter: 2025Q3

REPORT INFORMATION
  Report Type: Report from Study
  Country: US (occurrence: US)
  Receive Date: 20250922
  Receipt Date: 20250922
  Transmission Date: 20251021
  Serious: Yes (Hospitalization)
  Sender: ABBVIE
  Company Number: US-ABBVIE-6469119

PATIENT
  Age: 77 Year
  Sex: Male

DRUGS (1)
  1. VYALEV [Suspect]
     Active Substance: FOSCARBIDOPA\FOSLEVODOPA
     Indication: Product used for unknown indication
     Route: 058
     Dates: start: 20250902

REACTIONS (8)
  - Myocardial necrosis marker increased [Unknown]
  - Dyskinesia [Unknown]
  - Catheter site induration [Unknown]
  - Catheter site swelling [Unknown]
  - Catheter site erythema [Unknown]
  - Catheter site pain [Unknown]
  - Malabsorption from administration site [Unknown]
  - Troponin increased [Unknown]

NARRATIVE: CASE EVENT DATE: 20250901
